FAERS Safety Report 9059066 (Version 1)
Quarter: 2013Q1

REPORT INFORMATION
  Report Type: Spontaneous
  Country: US (occurrence: US)
  Receive Date: 20130211
  Receipt Date: 20130211
  Transmission Date: 20140127
  Serious: No
  Sender: FDA-Public Use
  Company Number: US-BRISTOL-MYERS SQUIBB COMPANY-16722373

PATIENT
  Age: 66 Year
  Sex: Female
  Weight: 68.93 kg

DRUGS (2)
  1. METFORMIN HCL [Suspect]
  2. COUMADIN [Suspect]
     Indication: DEEP VEIN THROMBOSIS
     Dosage: LAST DOSE ON DEC 2011.
     Dates: start: 2008

REACTIONS (2)
  - Glycosylated haemoglobin increased [Unknown]
  - Blood glucose fluctuation [Unknown]
